FAERS Safety Report 9727396 (Version 2)
Quarter: 2013Q4

REPORT INFORMATION
  Report Type: Spontaneous
  Country: CA (occurrence: CA)
  Receive Date: 20131203
  Receipt Date: 20131205
  Transmission Date: 20140711
  Serious: Yes (Other)
  Sender: FDA-Public Use
  Company Number: CA-BAXTER-2013BAX046917

PATIENT
  Sex: Female
  Weight: 75 kg

DRUGS (1)
  1. EXTRANEAL [Suspect]
     Indication: PERITONEAL DIALYSIS
     Route: 033
     Dates: start: 20121203

REACTIONS (3)
  - Device interaction [Unknown]
  - Hypoglycaemia [Recovered/Resolved]
  - Unresponsive to stimuli [Recovered/Resolved]
